FAERS Safety Report 12886125 (Version 1)
Quarter: 2016Q4

REPORT INFORMATION
  Report Type: Spontaneous
  Country: US (occurrence: US)
  Receive Date: 20161025
  Receipt Date: 20161025
  Transmission Date: 20170207
  Serious: Yes (Life-Threatening)
  Sender: FDA-Public Use
  Company Number: None

PATIENT
  Age: 58 Year
  Sex: Female
  Weight: 54 kg

DRUGS (9)
  1. TOPAMAX [Concomitant]
     Active Substance: TOPIRAMATE
  2. BIT D [Concomitant]
  3. VITAMIN B12 [Concomitant]
     Active Substance: CYANOCOBALAMIN
  4. MAGNESIUM [Concomitant]
     Active Substance: MAGNESIUM
  5. TORADOL [Suspect]
     Active Substance: KETOROLAC TROMETHAMINE
     Indication: PAIN
     Dosage: ?          QUANTITY:1 INJECTION(S);OTHER ROUTE:IV?
     Route: 042
     Dates: start: 20150715, end: 20160716
  6. FENTYL PATCH [Concomitant]
  7. OXYBUTIN [Concomitant]
     Active Substance: OXYBUTYNIN
  8. HYDROCODONE [Concomitant]
     Active Substance: HYDROCODONE
  9. GABAPETIN [Concomitant]
     Active Substance: GABAPENTIN

REACTIONS (1)
  - Renal failure [None]

NARRATIVE: CASE EVENT DATE: 20150715
